FAERS Safety Report 10072194 (Version 1)
Quarter: 2014Q2

REPORT INFORMATION
  Report Type: Spontaneous
  Country: US (occurrence: None)
  Receive Date: 20140410
  Receipt Date: 20140410
  Transmission Date: 20141212
  Serious: Yes (Other)
  Sender: FDA-Public Use
  Company Number: None

PATIENT
  Age: 27 Year
  Sex: Female
  Weight: 55 kg

DRUGS (1)
  1. PROGESTERONE [Suspect]

REACTIONS (6)
  - Dizziness [None]
  - Syncope [None]
  - Balance disorder [None]
  - Coordination abnormal [None]
  - Hypoaesthesia [None]
  - Muscular weakness [None]
